FAERS Safety Report 14201779 (Version 3)
Quarter: 2017Q4

REPORT INFORMATION
  Report Type: Spontaneous
  Country: US (occurrence: US)
  Receive Date: 20171117
  Receipt Date: 20171229
  Transmission Date: 20180321
  Serious: Yes (Other)
  Sender: FDA-Public Use
  Company Number: US-OMEROS CORPORATION-2017OME00017

PATIENT
  Age: 64 Year
  Sex: Male

DRUGS (18)
  1. LEVOTHYROXINE. [Concomitant]
     Active Substance: LEVOTHYROXINE
     Dosage: 150 ?G, 1X/DAY
     Route: 048
  2. LITHIUM CARBONATE. [Concomitant]
     Active Substance: LITHIUM CARBONATE
     Dosage: 300 TO 600 MG, 2X/DAY
     Route: 048
  3. OFLOXACIN. [Concomitant]
     Active Substance: OFLOXACIN
     Dosage: 1 DROP, 4X/DAY, BOTH EYES
     Dates: start: 20170916
  4. ATORVASTATIN [Concomitant]
     Active Substance: ATORVASTATIN
     Dosage: 10 MG, 1X/DAY
     Route: 048
  5. ALCON BSS [Concomitant]
     Dosage: UNK
     Dates: start: 20170919, end: 20170919
  6. STERILE SALINE [Concomitant]
     Dosage: UNK
     Dates: start: 20170919, end: 20170919
  7. OMIDRIA [Suspect]
     Active Substance: KETOROLAC\PHENYLEPHRINE
     Indication: INTRAOCULAR LENS IMPLANT
  8. VISCOAT [Concomitant]
     Route: 031
  9. BUPROPION HCL [Concomitant]
     Active Substance: BUPROPION HYDROCHLORIDE
     Dosage: 100 MG, 2X/DAY
     Route: 048
  10. THIOTHIXENE. [Concomitant]
     Active Substance: THIOTHIXENE
     Dosage: 20 MG, AS DIRECTED
     Route: 048
  11. DUREZOL [Suspect]
     Active Substance: DIFLUPREDNATE
     Route: 061
  12. KETOROLAC [Concomitant]
     Active Substance: KETOROLAC\KETOROLAC TROMETHAMINE
     Dosage: 1 DROP, 4X/DAY, RIGHT EYE
     Dates: start: 20170916, end: 20170919
  13. OMIDRIA [Suspect]
     Active Substance: KETOROLAC\PHENYLEPHRINE
     Indication: CATARACT OPERATION
     Dosage: UNK, ONCE, RIGHT EYE
     Route: 031
     Dates: start: 20170919, end: 20170919
  14. BRIMONIDINE [Concomitant]
     Active Substance: BRIMONIDINE TARTRATE
     Dosage: 1 DROP, 2X/DAY, RIGHT EYE
  15. PRESERVATIVE FREE INTRAOCULAR LIDOCAINE [Concomitant]
     Dosage: 4 ML, UNK
     Dates: start: 20170919, end: 20170919
  16. AMLODIPINE [Concomitant]
     Active Substance: AMLODIPINE BESYLATE
     Dosage: 5 MG, 1X/DAY
     Route: 048
  17. BETADINE [Concomitant]
     Active Substance: POVIDONE-IODINE
     Dosage: UNK
     Route: 061
     Dates: start: 20170919, end: 20170919
  18. DUOVISC [Concomitant]
     Active Substance: CHONDROITIN SULFATE A\HYALURONATE SODIUM
     Dosage: UNK
     Dates: start: 20170919, end: 20170919

REACTIONS (3)
  - Toxic anterior segment syndrome [Unknown]
  - Anterior chamber inflammation [Recovered/Resolved]
  - Intraocular pressure increased [Not Recovered/Not Resolved]

NARRATIVE: CASE EVENT DATE: 2017
